FAERS Safety Report 9626755 (Version 6)
Quarter: 2015Q1

REPORT INFORMATION
  Report Type: Spontaneous
  Country: TR (occurrence: TR)
  Receive Date: 20131016
  Receipt Date: 20150320
  Transmission Date: 20150721
  Serious: Yes (Hospitalization, Other)
  Sender: FDA-Public Use
  Company Number: TR-AMGEN-TURSP2013072375

PATIENT
  Age: 71 Year
  Sex: Female

DRUGS (4)
  1. ENBREL [Suspect]
     Active Substance: ETANERCEPT
     Dosage: 25 MG, 2X/WEEK
     Route: 058
     Dates: start: 201403
  2. ENBREL [Suspect]
     Active Substance: ETANERCEPT
     Indication: ANKYLOSING SPONDYLITIS
     Dosage: 50 MG, WEEKLY
     Route: 058
     Dates: start: 20110701, end: 201309
  3. METHOTREXATE [Concomitant]
     Active Substance: METHOTREXATE
     Dosage: UNK
  4. ENBREL [Suspect]
     Active Substance: ETANERCEPT
     Dosage: UNK
     Route: 065
     Dates: end: 201403

REACTIONS (11)
  - Hypoaesthesia [Recovered/Resolved]
  - Pain in extremity [Recovered/Resolved]
  - Chest pain [Recovered/Resolved]
  - Joint swelling [Recovering/Resolving]
  - Urinary tract infection [Recovered/Resolved]
  - Memory impairment [Unknown]
  - Bone disorder [Unknown]
  - Injection site pain [Recovered/Resolved]
  - Wrist fracture [Recovered/Resolved]
  - Arthralgia [Recovered/Resolved]
  - Fall [Recovered/Resolved]

NARRATIVE: CASE EVENT DATE: 2011
